FAERS Safety Report 9063755 (Version 1)
Quarter: 2013Q1

REPORT INFORMATION
  Report Type: Report from Study
  Country: US (occurrence: US)
  Receive Date: 20130129
  Receipt Date: 20130129
  Transmission Date: 20140127
  Serious: No
  Sender: FDA-Public Use
  Company Number: US-ABBOTT-12P-163-0948963-00

PATIENT
  Sex: Female
  Weight: 77.18 kg

DRUGS (2)
  1. HUMIRA 40 MG/0.8 ML PEN [Suspect]
     Indication: PRODUCT USED FOR UNKNOWN INDICATION
  2. MINOCYCLINE [Suspect]
     Indication: DRUG THERAPY

REACTIONS (5)
  - Rash [Recovered/Resolved]
  - Photosensitivity reaction [Recovered/Resolved]
  - Feeling abnormal [Recovered/Resolved]
  - Photosensitivity reaction [Recovered/Resolved]
  - Inappropriate schedule of drug administration [Not Recovered/Not Resolved]
